FAERS Safety Report 15056364 (Version 1)
Quarter: 2018Q2

REPORT INFORMATION
  Report Type: Spontaneous
  Country: US (occurrence: US)
  Receive Date: 20180603
  Receipt Date: 20180603
  Transmission Date: 20180711
  Serious: Yes (Life-Threatening, Disabling, Other)
  Sender: FDA-Public Use
  Company Number: None

PATIENT
  Age: 56 Year
  Sex: Male
  Weight: 96.75 kg

DRUGS (14)
  1. TRINTELLIX [Suspect]
     Active Substance: VORTIOXETINE HYDROBROMIDE
     Indication: DEPRESSION
     Dosage: ?          QUANTITY:0.5 TABLET(S);?
     Route: 048
     Dates: start: 20180514, end: 20180525
  2. ASPIRIN. [Concomitant]
     Active Substance: ASPIRIN
  3. DAILY VITAMIN [Concomitant]
     Active Substance: VITAMINS
  4. HYDROXYZYINE [Concomitant]
  5. PRILOSEC [Concomitant]
     Active Substance: OMEPRAZOLE MAGNESIUM
  6. TRINTELLIX [Suspect]
     Active Substance: VORTIOXETINE HYDROBROMIDE
     Indication: ANXIETY
     Dosage: ?          QUANTITY:0.5 TABLET(S);?
     Route: 048
     Dates: start: 20180514, end: 20180525
  7. LOSARTAN. [Concomitant]
     Active Substance: LOSARTAN
  8. MONTELUKAST [Concomitant]
     Active Substance: MONTELUKAST SODIUM
  9. VENTOLIN [Concomitant]
     Active Substance: ALBUTEROL SULFATE
  10. CRESTOR [Concomitant]
     Active Substance: ROSUVASTATIN CALCIUM
  11. AMLODIPINE [Concomitant]
     Active Substance: AMLODIPINE BESYLATE
  12. XANAX [Concomitant]
     Active Substance: ALPRAZOLAM
  13. OMEGA-3-ACID [Concomitant]
  14. IPRATROPIUM ALBUTEROL [Concomitant]
     Active Substance: ALBUTEROL\IPRATROPIUM

REACTIONS (3)
  - Suicidal ideation [None]
  - Panic attack [None]
  - Anxiety [None]

NARRATIVE: CASE EVENT DATE: 20180525
